FAERS Safety Report 20099534 (Version 1)
Quarter: 2021Q4

REPORT INFORMATION
  Report Type: Spontaneous
  Country: US (occurrence: US)
  Receive Date: 20211123
  Receipt Date: 20211123
  Transmission Date: 20220303
  Serious: Yes (Hospitalization, Other)
  Sender: FDA-Public Use
  Company Number: US-AUROBINDO-AUR-APL-2021-047387

PATIENT
  Age: 88 Year
  Sex: Female

DRUGS (2)
  1. ERTAPENEM [Suspect]
     Active Substance: ERTAPENEM
     Indication: Cellulitis
     Dosage: 1 GRAM, ONCE A DAY
     Route: 065
  2. ERTAPENEM [Suspect]
     Active Substance: ERTAPENEM
     Indication: Osteomyelitis

REACTIONS (4)
  - Toxic encephalopathy [Unknown]
  - Hallucination, visual [Recovered/Resolved]
  - Agitation [Unknown]
  - Mental status changes [Recovering/Resolving]
